FAERS Safety Report 22982180 (Version 2)
Quarter: 2024Q1

REPORT INFORMATION
  Report Type: Report from Study
  Country: US (occurrence: US)
  Receive Date: 20230926
  Receipt Date: 20240129
  Transmission Date: 20240410
  Serious: Yes (Other)
  Sender: FDA-Public Use
  Company Number: US-ABBVIE-5291774

PATIENT
  Sex: Female

DRUGS (2)
  1. HUMIRA [Suspect]
     Active Substance: ADALIMUMAB
     Indication: Psoriasis
     Route: 058
     Dates: start: 20190505
  2. HUMIRA [Suspect]
     Active Substance: ADALIMUMAB
     Route: 058
     Dates: start: 20230201

REACTIONS (7)
  - Rotator cuff syndrome [Unknown]
  - Psoriasis [Unknown]
  - Wrist surgery [Not Recovered/Not Resolved]
  - Mass [Not Recovered/Not Resolved]
  - Unevaluable event [Recovering/Resolving]
  - Hepatic steatosis [Unknown]
  - Malaise [Recovering/Resolving]

NARRATIVE: CASE EVENT DATE: 20230101
